FAERS Safety Report 11119257 (Version 1)
Quarter: 2015Q2

REPORT INFORMATION
  Report Type: Spontaneous
  Country: US (occurrence: None)
  Receive Date: 20150515
  Receipt Date: 20150515
  Transmission Date: 20150821
  Serious: No
  Sender: FDA-Public Use
  Company Number: None

PATIENT
  Age: 72 Year
  Sex: Male
  Weight: 95.5 kg

DRUGS (2)
  1. ALLEGRA INTENSIVE RELIEF ANTI-ITCH [Suspect]
     Active Substance: ALLANTOIN\DIPHENHYDRAMINE HYDROCHLORIDE
     Indication: RASH
     Dosage: THIN FILM
     Route: 061
     Dates: start: 20150420, end: 20150425
  2. ALLEGRA INTENSIVE RELIEF ANTI-ITCH [Suspect]
     Active Substance: ALLANTOIN\DIPHENHYDRAMINE HYDROCHLORIDE
     Indication: PRURITUS
     Dosage: THIN FILM
     Route: 061
     Dates: start: 20150420, end: 20150425

REACTIONS (2)
  - Product name confusion [None]
  - Product formulation issue [None]

NARRATIVE: CASE EVENT DATE: 20150420
